FAERS Safety Report 12930426 (Version 1)
Quarter: 2016Q4

REPORT INFORMATION
  Report Type: Spontaneous
  Country: US (occurrence: US)
  Receive Date: 20161111
  Receipt Date: 20161111
  Transmission Date: 20170207
  Serious: No
  Sender: FDA-Public Use
  Company Number: None

PATIENT

DRUGS (2)
  1. GUAIFENESIN HI-TECH PHARMACAL CO., INC. [Suspect]
     Active Substance: GUAIFENESIN
     Dosage: 100 MG/5 ML  UNIT DOCE CUP
     Route: 048
  2. GUAIFENESIN HI-TECH PHARMACAL CO., INC. [Suspect]
     Active Substance: GUAIFENESIN
     Dosage: 200MG/10ML  UNIT DOSE CUP
     Route: 048

REACTIONS (1)
  - Product commingling [None]
